FAERS Safety Report 23689428 (Version 1)
Quarter: 2024Q1

REPORT INFORMATION
  Report Type: Other
  Country: CN (occurrence: None)
  Receive Date: 20240331
  Receipt Date: 20240331
  Transmission Date: 20240409
  Serious: Yes (Hospitalization)
  Sender: FDA-Public Use
  Company Number: CN-ROCHE-3533921

PATIENT
  Age: 60 Year
  Sex: Female

DRUGS (19)
  1. BEVACIZUMAB [Suspect]
     Active Substance: BEVACIZUMAB
     Indication: Choriocarcinoma
     Route: 065
  2. BEVACIZUMAB [Suspect]
     Active Substance: BEVACIZUMAB
     Route: 065
     Dates: start: 20210831
  3. FLUOROURACIL [Suspect]
     Active Substance: FLUOROURACIL
     Indication: Choriocarcinoma
     Route: 065
     Dates: start: 20210224, end: 20210429
  4. FLUOROURACIL [Suspect]
     Active Substance: FLUOROURACIL
     Route: 065
     Dates: start: 20210519, end: 20210609
  5. ACTINOMYCIN D [Suspect]
     Active Substance: DACTINOMYCIN
     Indication: Choriocarcinoma
     Route: 065
     Dates: start: 20210224, end: 20210429
  6. ACTINOMYCIN D [Suspect]
     Active Substance: DACTINOMYCIN
     Route: 065
     Dates: start: 20210519, end: 20210609
  7. ACTINOMYCIN D [Suspect]
     Active Substance: DACTINOMYCIN
     Route: 065
     Dates: start: 20210702, end: 20210723
  8. ETOPOSIDE [Suspect]
     Active Substance: ETOPOSIDE
     Indication: Choriocarcinoma
     Route: 065
     Dates: start: 20210224, end: 20210429
  9. ETOPOSIDE [Suspect]
     Active Substance: ETOPOSIDE
     Route: 065
     Dates: start: 20210519, end: 20210609
  10. ETOPOSIDE [Suspect]
     Active Substance: ETOPOSIDE
     Route: 065
     Dates: start: 20210702, end: 20210723
  11. VINCRISTINE [Suspect]
     Active Substance: VINCRISTINE
     Indication: Choriocarcinoma
     Route: 065
     Dates: start: 20210224, end: 20210429
  12. VINCRISTINE [Suspect]
     Active Substance: VINCRISTINE
     Route: 065
     Dates: start: 20210519, end: 20210609
  13. VINCRISTINE [Suspect]
     Active Substance: VINCRISTINE
     Route: 065
     Dates: start: 20210702, end: 20210723
  14. METHOTREXATE [Suspect]
     Active Substance: METHOTREXATE
     Indication: Choriocarcinoma
     Route: 065
     Dates: start: 20210702, end: 20210723
  15. CYCLOPHOSPHAMIDE [Suspect]
     Active Substance: CYCLOPHOSPHAMIDE
     Indication: Choriocarcinoma
     Route: 065
     Dates: start: 20210702, end: 20210723
  16. IRINOTECAN [Concomitant]
     Active Substance: IRINOTECAN
  17. LEUCOVORIN [Concomitant]
     Active Substance: LEUCOVORIN\LEUCOVORIN CALCIUM
  18. APATINIB [Concomitant]
     Active Substance: APATINIB
     Route: 048
     Dates: start: 202009
  19. SINTILIMAB [Concomitant]
     Active Substance: SINTILIMAB
     Dates: start: 20210831

REACTIONS (1)
  - Disease progression [Not Recovered/Not Resolved]
